FAERS Safety Report 10212952 (Version 2)
Quarter: 2014Q2

REPORT INFORMATION
  Report Type: Report from Study
  Country: US (occurrence: US)
  Receive Date: 20140602
  Receipt Date: 20140611
  Transmission Date: 20141212
  Serious: Yes (Other)
  Sender: FDA-Public Use
  Company Number: US-ABBVIE-14P-163-1243433-00

PATIENT
  Sex: Female

DRUGS (13)
  1. HUMIRA [Suspect]
     Indication: RHEUMATOID ARTHRITIS
     Dates: start: 20140218
  2. LAMICTAL [Concomitant]
     Indication: NEUROPATHY PERIPHERAL
  3. GABAPENTIN [Concomitant]
     Indication: NEUROPATHY PERIPHERAL
  4. CYCLOBENZAPRINE [Concomitant]
     Indication: MUSCLE SPASMS
  5. TRAMADOL [Concomitant]
     Indication: PAIN
     Dosage: 37.5-325MG
  6. METOPROLOL [Concomitant]
     Indication: HYPERTENSION
  7. CATAPRESS [Concomitant]
     Indication: HYPERTENSION
     Dosage: 24 HOUR APPLIED WEEKLY
  8. PRILOSEC [Concomitant]
     Indication: PRODUCT USED FOR UNKNOWN INDICATION
     Dosage: 20.6
  9. VIT B12 [Concomitant]
     Indication: PRODUCT USED FOR UNKNOWN INDICATION
     Route: 050
  10. CALCIUM + VITAMIN D [Concomitant]
     Indication: PRODUCT USED FOR UNKNOWN INDICATION
  11. IRON [Concomitant]
     Indication: PRODUCT USED FOR UNKNOWN INDICATION
  12. MULTIVITAMIN [Concomitant]
     Indication: PRODUCT USED FOR UNKNOWN INDICATION
  13. VIT D [Concomitant]
     Indication: VITAMIN D DECREASED
     Dosage: FOR 12 WEEKS

REACTIONS (5)
  - Contusion [Unknown]
  - Mobility decreased [Unknown]
  - Fall [Unknown]
  - Vitamin D decreased [Unknown]
  - Laceration [Not Recovered/Not Resolved]
